FAERS Safety Report 11872944 (Version 2)
Quarter: 2018Q2

REPORT INFORMATION
  Report Type: Spontaneous
  Country: US (occurrence: US)
  Receive Date: 20151228
  Receipt Date: 20180404
  Transmission Date: 20180711
  Serious: No
  Sender: FDA-Public Use
  Company Number: US-PFIZER INC-2015456638

PATIENT
  Age: 65 Year
  Sex: Female

DRUGS (4)
  1. CELEBREX [Suspect]
     Active Substance: CELECOXIB
     Dosage: UNK
  2. BEXTRA [Suspect]
     Active Substance: VALDECOXIB
     Dosage: UNK
  3. PARAFON FORTE DSC [Suspect]
     Active Substance: CHLORZOXAZONE
     Dosage: UNK
  4. VIDAZA [Suspect]
     Active Substance: AZACITIDINE
     Dosage: UNK

REACTIONS (1)
  - Drug hypersensitivity [Unknown]
